FAERS Safety Report 5402224-3 (Version None)
Quarter: 2007Q3

REPORT INFORMATION
  Report Type: 
  Country: None (occurrence: None)
  Receive Date: 20070727
  Receipt Date: 20070718
  Transmission Date: 20080115
  Serious: Yes (Death)
  Sender: FDA-Public Use
  Company Number: 2007-03427

PATIENT
  Sex: Female

DRUGS (1)
  1. ACETAMINOPHEN WITH PROPOXYPHENE HCL TAB [Suspect]
     Indication: PROCEDURAL PAIN
     Dosage: ORAL
     Route: 048
     Dates: end: 20040717

REACTIONS (1)
  - DRUG TOXICITY [None]
